FAERS Safety Report 15505150 (Version 1)
Quarter: 2018Q4

REPORT INFORMATION
  Report Type: Spontaneous
  Country: US (occurrence: US)
  Receive Date: 20181010
  Receipt Date: 20181010
  Transmission Date: 20190205
  Serious: No
  Sender: FDA-Public Use
  Company Number: None

PATIENT
  Age: 57 Year
  Sex: Female
  Weight: 69.3 kg

DRUGS (3)
  1. PICATO [Suspect]
     Active Substance: INGENOL MEBUTATE
     Indication: ACTINIC KERATOSIS
     Dosage: ?          QUANTITY:3 TUBES;?
     Route: 061
     Dates: start: 20181008, end: 20181008
  2. ATORVASTATIN [Concomitant]
     Active Substance: ATORVASTATIN
  3. DAILY MULTIVITAMIN (ONE A DAY) [Concomitant]

REACTIONS (5)
  - Blister rupture [None]
  - Refusal of treatment by patient [None]
  - Wound secretion [None]
  - Application site vesicles [None]
  - Application site pain [None]

NARRATIVE: CASE EVENT DATE: 20181008
